FAERS Safety Report 10174285 (Version 1)
Quarter: 2014Q2

REPORT INFORMATION
  Report Type: Spontaneous
  Country: GB (occurrence: GB)
  Receive Date: 20140515
  Receipt Date: 20140515
  Transmission Date: 20141212
  Serious: Yes (Other)
  Sender: FDA-Public Use
  Company Number: GB-PFIZER INC-2014129090

PATIENT
  Age: 73 Year
  Sex: Female
  Weight: 82.6 kg

DRUGS (26)
  1. DOXYCYCLINE MONOHYDRATE [Suspect]
     Dosage: UNK
     Dates: start: 20140423
  2. ALENDRONIC ACID [Concomitant]
     Dosage: UNK
     Dates: start: 20140221, end: 20140417
  3. ALENDRONIC ACID [Concomitant]
     Dosage: UNK
     Dates: start: 20140422
  4. AMOXICILLIN [Concomitant]
     Dosage: UNK
     Dates: start: 20140327, end: 20140403
  5. BENDROFLUMETHIAZIDE [Concomitant]
     Dosage: UNK
     Dates: start: 20140121, end: 20140417
  6. BENDROFLUMETHIAZIDE [Concomitant]
     Dosage: UNK
     Dates: start: 20140422
  7. CALCIUM CARBONATE [Concomitant]
     Dosage: UNK
     Dates: start: 20140121, end: 20140419
  8. CALCIUM CARBONATE [Concomitant]
     Dosage: UNK
     Dates: start: 20140422
  9. CETIRIZINE [Concomitant]
     Dosage: UNK
     Dates: start: 20140220, end: 20140227
  10. CETIRIZINE [Concomitant]
     Dosage: UNK
     Dates: start: 20140320, end: 20140327
  11. FLUTICASONE [Concomitant]
     Dosage: UNK
     Dates: start: 20140121
  12. GLICLAZIDE [Concomitant]
     Dosage: UNK
     Dates: start: 20140121, end: 20140417
  13. GLICLAZIDE [Concomitant]
     Dates: start: 20140422
  14. KETOPROFEN [Concomitant]
     Dosage: UNK
     Dates: start: 20140320, end: 20140330
  15. METFORMIN [Concomitant]
     Dosage: UNK
     Dates: start: 20140121, end: 20140417
  16. METFORMIN [Concomitant]
     Dosage: UNK
     Dates: start: 20140422
  17. PREDNISOLONE [Concomitant]
     Dosage: UNK
     Dates: start: 20140320, end: 20140403
  18. PREDNISOLONE [Concomitant]
     Dosage: UNK
     Dates: start: 20140423
  19. SALAMOL [Concomitant]
     Dosage: UNK
     Dates: start: 20140121, end: 20140417
  20. SALAMOL [Concomitant]
     Dosage: UNK
     Dates: start: 20140422
  21. SIMVASTATIN [Concomitant]
     Dosage: UNK
     Dates: start: 20140121, end: 20140417
  22. SIMVASTATIN [Concomitant]
     Dosage: UNK
     Dates: start: 20140422
  23. TIOTROPIUM [Concomitant]
     Dosage: UNK
     Dates: start: 20140121
  24. UNIPHYLLIN CONTINUS [Concomitant]
     Dosage: UNK
     Dates: start: 20140121, end: 20140417
  25. UNIPHYLLIN CONTINUS [Concomitant]
     Dosage: UNK
     Dates: start: 20140422
  26. PANADEINE CO [Concomitant]
     Dosage: UNK
     Dates: start: 20140320, end: 20140417

REACTIONS (2)
  - Chest pain [Recovered/Resolved]
  - Nausea [Recovered/Resolved]
